FAERS Safety Report 12606247 (Version 1)
Quarter: 2016Q3

REPORT INFORMATION
  Report Type: Spontaneous
  Country: US (occurrence: None)
  Receive Date: 20160728
  Receipt Date: 20160728
  Transmission Date: 20161109
  Serious: Yes (Other)
  Sender: FDA-Public Use
  Company Number: None

PATIENT
  Age: 52 Year
  Sex: Female
  Weight: 77.3 kg

DRUGS (1)
  1. LURASIDONE [Suspect]
     Active Substance: LURASIDONE
     Indication: BIPOLAR I DISORDER
     Route: 048
     Dates: start: 20160622, end: 20160714

REACTIONS (3)
  - Dysphagia [None]
  - Pharyngeal oedema [None]
  - Angioedema [None]

NARRATIVE: CASE EVENT DATE: 20160714
